FAERS Safety Report 6719805-7 (Version None)
Quarter: 2010Q2

REPORT INFORMATION
  Report Type: 
  Country: None (occurrence: None)
  Receive Date: 20100511
  Receipt Date: 20100428
  Transmission Date: 20101027
  Serious: Yes (Hospitalization)
  Sender: FDA-Public Use
  Company Number: PHHY2010JP27518

PATIENT

DRUGS (3)
  1. ZOMETA [Suspect]
     Indication: METASTASES TO BONE
     Dosage: 4 MG
     Dates: start: 20100428
  2. GLYBURIDE [Concomitant]
     Dosage: 1.25 MG
     Route: 048
  3. NU-LOTAN [Concomitant]
     Dosage: 50 MG
     Route: 048

REACTIONS (3)
  - BLOOD PRESSURE DECREASED [None]
  - DEPRESSED LEVEL OF CONSCIOUSNESS [None]
  - FEELING HOT [None]
